FAERS Safety Report 9474120 (Version 14)
Quarter: 2014Q1

REPORT INFORMATION
  Report Type: Report from Study
  Country: CA (occurrence: CA)
  Receive Date: 20130823
  Receipt Date: 20140131
  Transmission Date: 20141002
  Serious: Yes (Other)
  Sender: FDA-Public Use
  Company Number: PHHY2013CA043405

PATIENT
  Age: 56 Year
  Sex: Male

DRUGS (8)
  1. SANDOSTATIN LAR [Suspect]
     Indication: CARCINOID TUMOUR
     Dosage: 20 MG, EVERY 4 WEEKS
     Route: 030
     Dates: start: 20130424
  2. SANDOSTATIN LAR [Suspect]
     Dosage: 40 MG, EVERY 2 WEEKS
     Route: 030
  3. SANDOSTATIN LAR [Suspect]
     Dosage: 40 MG, EVERY 2 WEEKS
     Route: 030
     Dates: start: 20130914
  4. SANDOSTATIN LAR [Suspect]
     Dosage: 40 MG, QW
     Route: 030
  5. COVERSYL [Concomitant]
     Dosage: 5 MG, QD IN THE MORNING
  6. COVERSYL [Concomitant]
     Dosage: 8 MG, QD
  7. METOPROLOL [Concomitant]
     Dosage: 25 MG, QD EACH EVENING
  8. METOPROLOL [Concomitant]
     Dosage: 25 MG, QD AT BEDTIME

REACTIONS (26)
  - Asthma [Recovering/Resolving]
  - Dyspnoea [Unknown]
  - Back pain [Unknown]
  - Tinnitus [Unknown]
  - Parathyroid hormone-related protein abnormal [Unknown]
  - Blood pressure increased [Not Recovered/Not Resolved]
  - Stress [Unknown]
  - Skin discolouration [Unknown]
  - Feeling cold [Unknown]
  - Arthralgia [Unknown]
  - Hot flush [Recovering/Resolving]
  - Flushing [Not Recovered/Not Resolved]
  - Hyperhidrosis [Not Recovered/Not Resolved]
  - Pain [Recovering/Resolving]
  - Poor quality sleep [Unknown]
  - Photophobia [Unknown]
  - Eye pain [Unknown]
  - Abdominal pain [Not Recovered/Not Resolved]
  - Diarrhoea [Unknown]
  - Flatulence [Unknown]
  - Nausea [Unknown]
  - Vomiting [Not Recovered/Not Resolved]
  - Asthenia [Recovering/Resolving]
  - Fatigue [Unknown]
  - Drug ineffective [Unknown]
  - Headache [Not Recovered/Not Resolved]
